FAERS Safety Report 7493676-6 (Version None)
Quarter: 2011Q2

REPORT INFORMATION
  Report Type: 
  Country: None (occurrence: None)
  Receive Date: 20110513
  Receipt Date: 20110427
  Transmission Date: 20111010
  Serious: Yes (Hospitalization)
  Sender: FDA-Public Use
  Company Number: 000903

PATIENT
  Sex: Male
  Weight: 120 kg

DRUGS (12)
  1. PK-LEVO [Concomitant]
  2. NEUPRO [Suspect]
     Indication: PARKINSON'S DISEASE
     Dosage: (6 MG, 1/2  PATCH TRANSDERMAL), (6 MG QD TRANSDERMAL), (8 MG QD TRANSDERMAL)
     Route: 062
     Dates: start: 20061127, end: 20061210
  3. NEUPRO [Suspect]
     Indication: PARKINSON'S DISEASE
     Dosage: (6 MG, 1/2  PATCH TRANSDERMAL), (6 MG QD TRANSDERMAL), (8 MG QD TRANSDERMAL)
     Route: 062
     Dates: start: 20061211, end: 20081111
  4. NEUPRO [Suspect]
     Indication: PARKINSON'S DISEASE
     Dosage: (6 MG, 1/2  PATCH TRANSDERMAL), (6 MG QD TRANSDERMAL), (8 MG QD TRANSDERMAL)
     Route: 062
     Dates: start: 20081112, end: 20081126
  5. MARCUMAR [Concomitant]
  6. AZILECT [Concomitant]
  7. AMLODIPINE [Concomitant]
  8. VIGANTOLETTEN /01871301/ [Concomitant]
  9. HYDROCHLOROTHIAZIDE [Concomitant]
  10. STALEVO 100 [Concomitant]
  11. RAMIPRIL [Concomitant]
  12. TORSEMIDE [Concomitant]

REACTIONS (1)
  - CARDIAC FAILURE [None]
